FAERS Safety Report 10547091 (Version 1)
Quarter: 2014Q4

REPORT INFORMATION
  Report Type: Spontaneous
  Country: US (occurrence: US)
  Receive Date: 20141027
  Receipt Date: 20141027
  Transmission Date: 20150529
  Serious: No
  Sender: FDA-Public Use
  Company Number: US-ABBVIE-14P-163-1257092-00

PATIENT
  Age: 30 Year
  Sex: Female
  Weight: 54.48 kg

DRUGS (6)
  1. LUPRON DEPOT [Suspect]
     Active Substance: LEUPROLIDE ACETATE
     Indication: ENDOMETRIOSIS
     Dates: start: 201402, end: 20140703
  2. VALIUM [Concomitant]
     Active Substance: DIAZEPAM
     Indication: MUSCLE SPASMS
  3. BACLOFEN. [Concomitant]
     Active Substance: BACLOFEN
     Indication: MUSCLE SPASMS
  4. CREON [Concomitant]
     Active Substance: PANCRELIPASE AMYLASE\PANCRELIPASE LIPASE\PANCRELIPASE PROTEASE
     Indication: PANCREAS DIVISUM
  5. FLEXERIL [Concomitant]
     Active Substance: CYCLOBENZAPRINE HYDROCHLORIDE
     Indication: MUSCLE SPASMS
  6. TRAMADOL [Concomitant]
     Active Substance: TRAMADOL
     Indication: MUSCLE SPASMS

REACTIONS (6)
  - Hypertension [Not Recovered/Not Resolved]
  - Constipation [Not Recovered/Not Resolved]
  - Rectal discharge [Recovered/Resolved]
  - Frequent bowel movements [Unknown]
  - Abdominal pain [Not Recovered/Not Resolved]
  - Rectal haemorrhage [Recovered/Resolved]

NARRATIVE: CASE EVENT DATE: 201402
